FAERS Safety Report 8386371-2 (Version None)
Quarter: 2012Q2

REPORT INFORMATION
  Report Type: 
  Country: None (occurrence: None)
  Receive Date: 20120523
  Receipt Date: 20120507
  Transmission Date: 20120825
  Serious: No
  Sender: FDA-Public Use
  Company Number: TCI2011A05739

PATIENT
  Age: 52 Year
  Sex: Male

DRUGS (9)
  1. GLACTIV (SITAGLIPTIN) [Concomitant]
  2. ACTOS [Suspect]
     Indication: TYPE 2 DIABETES MELLITUS
     Dosage: 30 MG (30 MG, 1 IN 1 D) PER ORAL ; 15 MG (15 MG,1 IN 1 D) PER ORAL
     Dates: start: 20090709, end: 20110617
  3. ACTOS [Suspect]
     Indication: TYPE 2 DIABETES MELLITUS
     Dosage: 30 MG (30 MG, 1 IN 1 D) PER ORAL ; 15 MG (15 MG,1 IN 1 D) PER ORAL
     Dates: start: 20071001, end: 20071211
  4. DIOVAN [Concomitant]
  5. HMG COA REDUCTASE INHIBITORS [Concomitant]
  6. AMARYL [Concomitant]
  7. METFORMIN HCL [Concomitant]
  8. VOGLIBOSE [Concomitant]
  9. METFORMIN HYDROCHLORIDE [Concomitant]

REACTIONS (1)
  - BLOOD URINE PRESENT [None]
